FAERS Safety Report 7728590-1 (Version None)
Quarter: 2011Q3

REPORT INFORMATION
  Report Type: 
  Country: None (occurrence: None)
  Receive Date: 20110831
  Receipt Date: 20110831
  Transmission Date: 20111222
  Serious: Yes (Other)
  Sender: FDA-Public Use
  Company Number: None

PATIENT
  Sex: Female
  Weight: 72.2 kg

DRUGS (4)
  1. SYNTHROID [Concomitant]
  2. VENOFER [Suspect]
     Indication: IRON DEFICIENCY ANAEMIA
     Dosage: 200MG Q WWK X 5 IVPB OVER 30 MINUTES
     Dates: start: 20110823
  3. FUROSEMIDE [Concomitant]
  4. M.V.I. [Concomitant]

REACTIONS (1)
  - INFUSION SITE PAIN [None]
